FAERS Safety Report 7889465-0 (Version None)
Quarter: 2011Q4

REPORT INFORMATION
  Report Type: 
  Country: None (occurrence: None)
  Receive Date: 20111103
  Receipt Date: 20111025
  Transmission Date: 20120403
  Serious: Yes (Other)
  Sender: FDA-Public Use
  Company Number: PHHY2011US95564

PATIENT

DRUGS (4)
  1. DOXORUBICIN HCL [Suspect]
     Route: 064
  2. CYCLOPHOSPHAMIDE [Suspect]
  3. PACLITAXEL [Suspect]
     Route: 064
  4. NEUPOGEN [Suspect]
     Route: 064

REACTIONS (3)
  - PREMATURE BABY [None]
  - SMALL FOR DATES BABY [None]
  - MATERNAL EXPOSURE DURING PREGNANCY [None]
